FAERS Safety Report 20022170 (Version 1)
Quarter: 2021Q4

REPORT INFORMATION
  Report Type: Spontaneous
  Country: CN (occurrence: CN)
  Receive Date: 20211102
  Receipt Date: 20211102
  Transmission Date: 20220303
  Serious: Yes (Hospitalization)
  Sender: FDA-Public Use
  Company Number: CN-BAXTER-2021BAX033724

PATIENT
  Age: 4 Year
  Sex: Female
  Weight: 21 kg

DRUGS (16)
  1. CYCLOPHOSPHAMIDE [Suspect]
     Active Substance: CYCLOPHOSPHAMIDE
     Indication: Leukaemia
     Dosage: ROUTE OF ADMIN: INTRA-PUMP INJECTION, CYCLOPHOSPHAMIDE 0.75 G + SODIUM CHLORIDE 100 ML
     Route: 050
     Dates: start: 20210930, end: 20210930
  2. CYCLOPHOSPHAMIDE [Suspect]
     Active Substance: CYCLOPHOSPHAMIDE
     Dosage: INTRA-PUMP INJECTION, DOSE RE-INTRODUCED
     Route: 050
  3. DEXTROSE [Suspect]
     Active Substance: DEXTROSE
     Indication: Medication dilution
     Dosage: METHOTREXATE 12MG + GLUCOSE INJECTION 100 ML
     Route: 037
     Dates: start: 20211002
  4. DEXTROSE [Suspect]
     Active Substance: DEXTROSE
     Dosage: CYTARABINE HYDROCHLORIDE 0.075 G + GLUCOSE INJECTION 100 ML, ROUTE: PUMP INJECTION
     Route: 050
     Dates: start: 20211005
  5. DEXTROSE [Suspect]
     Active Substance: DEXTROSE
     Dosage: CYTARABINE HYDROCHLORIDE + GLUCOSE INJECTION, ROUTE: PUMP INJECTION
     Route: 050
  6. DEXTROSE [Suspect]
     Active Substance: DEXTROSE
     Dosage: METHOTREXATE + GLUCOSE INJECTION
     Route: 037
  7. SODIUM CHLORIDE [Suspect]
     Active Substance: SODIUM CHLORIDE
     Indication: Medication dilution
     Dosage: CYCLOPHOSPHAMIDE 0.75 G + SODIUM CHLORIDE 100 ML, ROUTE: PUMP INJECTION
     Route: 050
     Dates: start: 20210930, end: 20210930
  8. SODIUM CHLORIDE [Suspect]
     Active Substance: SODIUM CHLORIDE
     Dosage: CYCLOPHOSPHAMIDE + SODIUM CHLORIDE, ROUTE: PUMP INJECTION, DOSE REINTRODUCED
     Route: 050
  9. SODIUM CHLORIDE [Suspect]
     Active Substance: SODIUM CHLORIDE
     Dosage: PEGASPARGASE 1950 IU + SODIUM CHLORIDE 5 ML
     Route: 037
     Dates: start: 20210930
  10. SODIUM CHLORIDE [Suspect]
     Active Substance: SODIUM CHLORIDE
     Dosage: CYTARABINE HYDROCHLORIDE 0.036 G + SODIUM CHLORIDE INJECTION 5 ML
     Route: 037
     Dates: start: 20210902
  11. MERCAPTOPURINE [Suspect]
     Active Substance: MERCAPTOPURINE
     Indication: Leukaemia
     Route: 048
     Dates: start: 20210930
  12. PEGASPARGASE [Suspect]
     Active Substance: PEGASPARGASE
     Indication: Leukaemia
     Dosage: PEGASPARGASE 1950 IU + SODIUM CHLORIDE INJECTION 5 ML
     Route: 030
     Dates: start: 20210930
  13. CYTARABINE HYDROCHLORIDE [Suspect]
     Active Substance: CYTARABINE HYDROCHLORIDE
     Indication: Leukaemia
     Dosage: CYTARABINE HYDROCHLORIDE 0.036 G + SODIUM CHLORIDE INJECTION 5 ML
     Route: 037
     Dates: start: 20211002
  14. CYTARABINE HYDROCHLORIDE [Suspect]
     Active Substance: CYTARABINE HYDROCHLORIDE
     Dosage: ROUTE: PUMP INJECTION, CYTARABINE HYDROCHLORIDE 0.075 G + GLUCOSE 100 ML
     Route: 037
     Dates: start: 20211005
  15. CYTARABINE HYDROCHLORIDE [Suspect]
     Active Substance: CYTARABINE HYDROCHLORIDE
     Dosage: ROUTE: PUMP INJECTION
     Route: 050
     Dates: start: 20211009
  16. METHOTREXATE [Suspect]
     Active Substance: METHOTREXATE
     Indication: Leukaemia
     Dosage: METHOTREXATE 12 MG + GLUCOSE INJECTION 100 ML, ROUTE: PUMP INJECTION
     Route: 037
     Dates: start: 20211002

REACTIONS (2)
  - White blood cell count decreased [Unknown]
  - Neutrophil count decreased [Unknown]

NARRATIVE: CASE EVENT DATE: 20211009
